FAERS Safety Report 9400181 (Version 3)
Quarter: 2013Q3

REPORT INFORMATION
  Report Type: Spontaneous
  Country: TR (occurrence: TR)
  Receive Date: 20130715
  Receipt Date: 20130808
  Transmission Date: 20140515
  Serious: Yes (Other)
  Sender: FDA-Public Use
  Company Number: TR-PFIZER INC-2013207103

PATIENT
  Age: 23 Year
  Sex: Male
  Weight: 96 kg

DRUGS (1)
  1. CHAMPIX [Suspect]
     Indication: SMOKING CESSATION THERAPY
     Dosage: UNK 1X/DAY
     Route: 048
     Dates: start: 20130705, end: 20130705

REACTIONS (1)
  - Haematochezia [Recovered/Resolved]
